FAERS Safety Report 17146401 (Version 2)
Quarter: 2020Q2

REPORT INFORMATION
  Report Type: Spontaneous
  Country: US (occurrence: US)
  Receive Date: 20191212
  Receipt Date: 20200401
  Transmission Date: 20200713
  Serious: Yes (Hospitalization, Other)
  Sender: FDA-Public Use
  Company Number: US-GILEAD-2019-0441979

PATIENT
  Sex: Male

DRUGS (1)
  1. ATRIPLA [Suspect]
     Active Substance: EFAVIRENZ\EMTRICITABINE\TENOFOVIR DISOPROXIL FUMARATE
     Indication: HIV INFECTION
     Dosage: UNK
     Route: 048
     Dates: start: 200806, end: 201007

REACTIONS (13)
  - Osteoporosis [Not Recovered/Not Resolved]
  - Ligament disorder [Not Recovered/Not Resolved]
  - Fluid retention [Unknown]
  - Economic problem [Unknown]
  - Hypertension [Not Recovered/Not Resolved]
  - Unemployment [Unknown]
  - Anhedonia [Unknown]
  - Emotional distress [Unknown]
  - Pain [Unknown]
  - Hypotension [Not Recovered/Not Resolved]
  - Acute kidney injury [Not Recovered/Not Resolved]
  - Gout [Not Recovered/Not Resolved]
  - Anxiety [Unknown]

NARRATIVE: CASE EVENT DATE: 2009
